FAERS Safety Report 21667454 (Version 1)
Quarter: 2022Q4

REPORT INFORMATION
  Report Type: Spontaneous
  Country: DE (occurrence: DE)
  Receive Date: 20221201
  Receipt Date: 20221201
  Transmission Date: 20230113
  Serious: Yes (Hospitalization)
  Sender: FDA-Public Use
  Company Number: None

PATIENT
  Age: 46 Year
  Sex: Female
  Weight: 90 kg

DRUGS (2)
  1. ESCITALOPRAM [Suspect]
     Active Substance: ESCITALOPRAM OXALATE
     Indication: Product used for unknown indication
     Dosage: 15 MG, 1-0-0-0
  2. BUPROPION [Concomitant]
     Active Substance: BUPROPION
     Dosage: 150 MG, 1-0-0-0

REACTIONS (4)
  - Palpitations [Unknown]
  - Feeling hot [Unknown]
  - Dyspnoea exertional [Unknown]
  - General physical health deterioration [Unknown]
